FAERS Safety Report 6959252-6 (Version None)
Quarter: 2010Q3

REPORT INFORMATION
  Report Type: 
  Country: None (occurrence: None)
  Receive Date: 20100831
  Receipt Date: 20100820
  Transmission Date: 20110219
  Serious: Yes (Other)
  Sender: FDA-Public Use
  Company Number: JP-PFIZER INC-2010052396

PATIENT
  Age: 40 Year
  Sex: Male

DRUGS (6)
  1. ADRIACIN [Suspect]
     Indication: HODGKIN'S DISEASE
     Dosage: 40 MG
     Dates: start: 20071116, end: 20080226
  2. VINBLASTINE SULFATE [Suspect]
     Indication: HODGKIN'S DISEASE
     Dosage: 10 MG
     Dates: start: 20071116, end: 20080226
  3. BLEO [Suspect]
     Indication: HODGKIN'S DISEASE
     Dosage: 15 MG, UNK
     Dates: start: 20071116, end: 20080226
  4. DACARBAZINE [Suspect]
     Indication: HODGKIN'S DISEASE
     Dosage: 400 MG, UNK
     Dates: start: 20071116, end: 20080226
  5. PAXIL [Concomitant]
     Indication: DEPRESSION
     Dosage: 10 MG, 1X/DAY
     Route: 048
  6. TOLEDOMIN [Concomitant]
     Dosage: 100 MG, 1X/DAY
     Route: 048
     Dates: end: 20080222

REACTIONS (1)
  - FRONTOTEMPORAL DEMENTIA [None]
